FAERS Safety Report 19594500 (Version 1)
Quarter: 2021Q3

REPORT INFORMATION
  Report Type: Report from Study
  Country: DE (occurrence: DE)
  Receive Date: 20210722
  Receipt Date: 20210722
  Transmission Date: 20211014
  Serious: Yes (Death)
  Sender: FDA-Public Use
  Company Number: DE-MYLANLABS-2021M1044613

PATIENT
  Age: 77 Year
  Sex: Female
  Weight: 84 kg

DRUGS (36)
  1. NOVALGIN (METAMIZOLE SODIUM) [Concomitant]
     Active Substance: METAMIZOLE SODIUM
     Indication: PAIN
     Dosage: 1500 MILLIGRAM, QD
     Route: 048
  2. DIGITOXIN [Concomitant]
     Active Substance: DIGITOXIN
     Indication: CARDIAC FAILURE
     Dosage: UNK UNK, QD
     Route: 048
  3. TOREM                              /01036501/ [Concomitant]
     Active Substance: TORSEMIDE
     Indication: CARDIAC FAILURE
     Dosage: UNK UNK, QD
     Route: 048
  4. NALOXONE HYDROCHLORIDE. [Concomitant]
     Active Substance: NALOXONE HYDROCHLORIDE
     Indication: CARDIAC FAILURE
     Dosage: UNK
  5. TORASEMID [Concomitant]
     Active Substance: TORSEMIDE
     Indication: HYPERTENSION
     Dosage: 20 MILLIGRAM, QD
     Route: 048
     Dates: start: 2008
  6. PANTOPRAZOL                        /01263201/ [Concomitant]
     Active Substance: PANTOPRAZOLE
     Indication: GASTRITIS PROPHYLAXIS
     Dosage: 40 MILLIGRAM, QD
     Route: 048
     Dates: start: 1998
  7. SPIRIVA [Concomitant]
     Active Substance: TIOTROPIUM BROMIDE MONOHYDRATE
     Indication: DYSPNOEA
     Dosage: 18 MILLIGRAM, QD
     Route: 055
     Dates: start: 201310
  8. DECORTIN H [Concomitant]
     Active Substance: PREDNISOLONE
     Indication: PNEUMOCYSTIS JIROVECII PNEUMONIA
     Dosage: 5 MILLIGRAM, QD
     Route: 048
  9. DEXAMETHASONE. [Suspect]
     Active Substance: DEXAMETHASONE
     Dosage: 20 MILLIGRAM
     Route: 065
     Dates: start: 20140220, end: 20140312
  10. MARCUMAR [Concomitant]
     Active Substance: PHENPROCOUMON
     Indication: INTERNATIONAL NORMALISED RATIO ABNORMAL
     Dosage: UNK
  11. FORMOTEROL FUMARATE [Concomitant]
     Active Substance: FORMOTEROL FUMARATE
     Indication: CHRONIC OBSTRUCTIVE PULMONARY DISEASE
     Dosage: 1280 MILLIGRAM, QD
     Route: 055
  12. PREDNISOLON                        /00016201/ [Concomitant]
     Active Substance: PREDNISOLONE
     Indication: ALVEOLITIS
     Dosage: UNK
  13. PREDNISOLON                        /00016201/ [Concomitant]
     Active Substance: PREDNISOLONE
     Indication: CUTANEOUS VASCULITIS
     Dosage: 5 MILLIGRAM, QD
     Route: 048
     Dates: start: 201401
  14. SPIRONOLACTONE. [Concomitant]
     Active Substance: SPIRONOLACTONE
     Indication: OEDEMA
     Dosage: 25 MILLIGRAM, QD
     Route: 048
  15. DEXAMETHASONE. [Suspect]
     Active Substance: DEXAMETHASONE
     Indication: PLASMA CELL MYELOMA
     Dosage: 20 MILLIGRAM
     Route: 065
     Dates: start: 20141224, end: 20150114
  16. NALOXONE HYDROCHLORIDE. [Concomitant]
     Active Substance: NALOXONE HYDROCHLORIDE
     Indication: PAIN
  17. LYRICA [Concomitant]
     Active Substance: PREGABALIN
     Dosage: 100 MILLIGRAM, QD
     Route: 048
  18. PANTOPRAZOL                        /01263201/ [Concomitant]
     Active Substance: PANTOPRAZOLE
     Dosage: 20 MILLIGRAM, QD
     Route: 048
  19. SPIRIVA [Concomitant]
     Active Substance: TIOTROPIUM BROMIDE MONOHYDRATE
     Indication: ALVEOLITIS
     Dosage: UNK
  20. NOVAMINSULFON?RATIOPHARM [Concomitant]
     Active Substance: METAMIZOLE
     Indication: RHEUMATOID ARTHRITIS
     Dosage: 1500 MILLIGRAM, QD
     Route: 048
     Dates: start: 1998
  21. POMALIDOMIDE [Suspect]
     Active Substance: POMALIDOMIDE
     Dosage: 2 MILLIGRAM
     Route: 048
     Dates: start: 20140219, end: 20140311
  22. MARCUMAR [Concomitant]
     Active Substance: PHENPROCOUMON
     Indication: ATRIAL FIBRILLATION
     Dosage: 3 MILLIGRAM, QD
     Route: 048
     Dates: start: 2008
  23. ROTIGOTINE [Concomitant]
     Active Substance: ROTIGOTINE
     Indication: RESTLESS LEGS SYNDROME
     Dosage: 4 MILLIGRAM, QD
     Route: 048
     Dates: start: 201310
  24. XGEVA [Concomitant]
     Active Substance: DENOSUMAB
     Indication: PLASMACYTOMA
     Dosage: 120 MILLIGRAM, MONTHLY
     Route: 041
     Dates: start: 20120224
  25. LYRICA [Concomitant]
     Active Substance: PREGABALIN
     Indication: POLYNEUROPATHY
     Dosage: 120 MILLIGRAM, QD
     Route: 048
     Dates: start: 2013
  26. LYRICA [Concomitant]
     Active Substance: PREGABALIN
     Indication: RESTLESS LEGS SYNDROME
     Dosage: 150 MILLIGRAM, QD (120 MILLIGRAM)
     Route: 048
     Dates: start: 2013
  27. ALDACTONE [Concomitant]
     Active Substance: SPIRONOLACTONE
     Indication: HYPERTENSION
     Dosage: 25 MILLIGRAM, QD
     Route: 048
     Dates: start: 2008
  28. VIGANTOLETTEN [Concomitant]
     Active Substance: CHOLECALCIFEROL
     Indication: VITAMIN SUPPLEMENTATION
     Dosage: 1000 IU (INTERNATIONAL UNIT)
     Route: 048
     Dates: start: 20130912
  29. POMALIDOMIDE [Suspect]
     Active Substance: POMALIDOMIDE
     Indication: PLASMA CELL MYELOMA
     Dosage: 2 MILLIGRAM
     Route: 048
     Dates: start: 20141224, end: 20150113
  30. SPIRIVA [Concomitant]
     Active Substance: TIOTROPIUM BROMIDE MONOHYDRATE
     Indication: CHRONIC OBSTRUCTIVE PULMONARY DISEASE
     Dosage: UNK
  31. METOPROLOL SUCCINATE. [Concomitant]
     Active Substance: METOPROLOL SUCCINATE
     Indication: HYPERTENSION
     Dosage: UNK UNK, QD
     Route: 048
  32. MAGNESIUM [Concomitant]
     Active Substance: MAGNESIUM
     Indication: RESTLESS LEGS SYNDROME
     Dosage: UNK UNK, QD
     Route: 048
  33. METOPROLOL. [Concomitant]
     Active Substance: METOPROLOL
     Indication: HYPERTENSION
     Dosage: 142.5 MILLIGRAM, QD
     Route: 048
     Dates: start: 2008
  34. POMALIDOMIDE [Suspect]
     Active Substance: POMALIDOMIDE
     Dosage: 2 MILLIGRAM, QD
     Route: 048
     Dates: end: 20150717
  35. NALOXONE HYDROCHLORIDE. [Concomitant]
     Active Substance: NALOXONE HYDROCHLORIDE
     Indication: ATRIAL FIBRILLATION
     Dosage: UNK, QD (50/4MILLIGRAM)
     Route: 048
  36. PANTOPRAZOL                        /01263201/ [Concomitant]
     Active Substance: PANTOPRAZOLE
     Indication: PROPHYLAXIS
     Dosage: 20 MILLIGRAM, QD
     Route: 048

REACTIONS (2)
  - Cardiac failure [Fatal]
  - Atrial fibrillation [Fatal]

NARRATIVE: CASE EVENT DATE: 20150618
